FAERS Safety Report 6718724-X (Version None)
Quarter: 2010Q2

REPORT INFORMATION
  Report Type: 
  Country: None (occurrence: None)
  Receive Date: 20100505
  Receipt Date: 20100426
  Transmission Date: 20101027
  Serious: Yes (Hospitalization)
  Sender: FDA-Public Use
  Company Number: 010883

PATIENT
  Age: 25 Year
  Sex: Female

DRUGS (4)
  1. KEPPRA [Suspect]
     Indication: PARTIAL SEIZURES
     Dosage: (500 MG BID), (2250 MG, 100MG IN THE MORNING + 1250 MG IN THE EVENING), (DOWN TITRATED)
     Dates: start: 20100412, end: 20100401
  2. KEPPRA [Suspect]
     Indication: PARTIAL SEIZURES
     Dosage: (500 MG BID), (2250 MG, 100MG IN THE MORNING + 1250 MG IN THE EVENING), (DOWN TITRATED)
     Dates: start: 20090401, end: 20100411
  3. KEPPRA [Suspect]
     Indication: PARTIAL SEIZURES
     Dosage: (500 MG BID), (2250 MG, 100MG IN THE MORNING + 1250 MG IN THE EVENING), (DOWN TITRATED)
     Dates: start: 20100401
  4. LAMOTRIGINE [Concomitant]

REACTIONS (2)
  - DYSARTHRIA [None]
  - FATIGUE [None]
